FAERS Safety Report 12185136 (Version 1)
Quarter: 2016Q1

REPORT INFORMATION
  Report Type: Spontaneous
  Country: SE (occurrence: SE)
  Receive Date: 20160316
  Receipt Date: 20160316
  Transmission Date: 20160526
  Serious: Yes (Life-Threatening, Other)
  Sender: FDA-Public Use
  Company Number: SE-ELI_LILLY_AND_COMPANY-SE201404000117

PATIENT
  Age: 40 Year
  Sex: Female

DRUGS (3)
  1. CYMBALTA [Suspect]
     Active Substance: DULOXETINE HYDROCHLORIDE
     Indication: ANXIETY
     Dosage: 60 MG, UNKNOWN
     Route: 065
  2. IMOVANE [Concomitant]
     Active Substance: ZOPICLONE
  3. ATARAX [Concomitant]
     Active Substance: HYDROXYZINE\HYDROXYZINE HYDROCHLORIDE

REACTIONS (10)
  - Suicidal ideation [Unknown]
  - Hyperacusis [Unknown]
  - Fatigue [Unknown]
  - Tremor [Unknown]
  - Paraesthesia [Unknown]
  - Photophobia [Unknown]
  - Drug withdrawal syndrome [Unknown]
  - Hypoaesthesia [Unknown]
  - Nausea [Unknown]
  - Dizziness [Unknown]

NARRATIVE: CASE EVENT DATE: 201403
